FAERS Safety Report 6753130-3 (Version None)
Quarter: 2010Q2

REPORT INFORMATION
  Report Type: 
  Country: None (occurrence: None)
  Receive Date: 20100603
  Receipt Date: 20100524
  Transmission Date: 20101027
  Serious: Yes (Other)
  Sender: FDA-Public Use
  Company Number: US-PFIZER INC-2008098979

PATIENT
  Sex: Female
  Weight: 63.49 kg

DRUGS (14)
  1. CHANTIX [Suspect]
     Indication: SMOKING CESSATION THERAPY
     Dosage: 0.5 MG, 1X/DAY
     Route: 048
     Dates: start: 20081003, end: 20090201
  2. ELAVIL [Concomitant]
     Indication: DEPRESSION
  3. LARIAM [Concomitant]
  4. RESTORIL [Concomitant]
     Indication: ANXIETY
  5. TYLENOL [Concomitant]
  6. ASPIRIN [Concomitant]
  7. ALEVE (CAPLET) [Concomitant]
  8. LIBRIUM [Concomitant]
     Indication: ANXIETY
  9. LEXAPRO [Concomitant]
     Dosage: UNK
  10. ANXIOLYTICS [Concomitant]
     Dosage: UNK
  11. TYLENOL W/ CODEINE NO. 4 [Concomitant]
     Indication: BACK PAIN
  12. ADVAIR DISKUS 100/50 [Concomitant]
  13. COFFEE [Concomitant]
  14. SULINDAC [Concomitant]

REACTIONS (7)
  - ABNORMAL BEHAVIOUR [None]
  - ANXIETY [None]
  - DEPRESSION [None]
  - HOMICIDAL IDEATION [None]
  - MENTAL IMPAIRMENT [None]
  - NERVOUSNESS [None]
  - SELF-INJURIOUS IDEATION [None]
